FAERS Safety Report 7583956-8 (Version None)
Quarter: 2011Q2

REPORT INFORMATION
  Report Type: 
  Country: None (occurrence: None)
  Receive Date: 20110628
  Receipt Date: 20110628
  Transmission Date: 20111010
  Serious: Yes (Other)
  Sender: FDA-Public Use
  Company Number: None

PATIENT
  Age: 40 Year
  Sex: Male
  Weight: 93.2 kg

DRUGS (1)
  1. PRO-HEALTH CPC ANTIGING'S/ANTIPLAQUE ORAL RINSE CETYLPYRIDINIUM CHLORI [Suspect]
     Indication: BREATH ODOUR
     Dosage: 1/3 CAP FULL 1 TIME ORAL RINSE
     Route: 004
     Dates: start: 20110615

REACTIONS (5)
  - OEDEMA MOUTH [None]
  - HYPOAESTHESIA [None]
  - ORAL PAIN [None]
  - TONGUE DISORDER [None]
  - GINGIVAL HYPERTROPHY [None]
